FAERS Safety Report 4305933-2 (Version None)
Quarter: 2004Q1

REPORT INFORMATION
  Report Type: 
  Country: None (occurrence: None)
  Receive Date: 20040225
  Receipt Date: 20040210
  Transmission Date: 20041129
  Serious: Yes (Hospitalization)
  Sender: FDA-Public Use
  Company Number: 2004-DE-00681GD

PATIENT
  Age: 63 Year
  Sex: Female

DRUGS (3)
  1. THEOPHYLLINE [Suspect]
     Dosage: PO
     Route: 048
  2. PHENYTOIN [Suspect]
     Dosage: PO
     Route: 048
  3. HALOPERIDOL [Suspect]
     Dosage: PO
     Route: 048

REACTIONS (2)
  - PNEUMONIA ASPIRATION [None]
  - POISONING [None]
